FAERS Safety Report 23150973 (Version 1)
Quarter: 2023Q4

REPORT INFORMATION
  Report Type: Spontaneous
  Country: KR (occurrence: KR)
  Receive Date: 20231106
  Receipt Date: 20231106
  Transmission Date: 20240110
  Serious: No
  Sender: FDA-Public Use
  Company Number: KR-SCALL-2023-APC-049879

PATIENT
  Sex: Female

DRUGS (3)
  1. DUTASTERIDE [Suspect]
     Active Substance: DUTASTERIDE
     Indication: Alopecia
     Dosage: 0.5MG
     Route: 065
  2. MINOXIDIL [Suspect]
     Active Substance: MINOXIDIL
     Indication: Alopecia
     Route: 065
  3. Dexamethasone, Esttradiol, Salicylic acid (Ell- cranell) [Concomitant]
     Route: 065

REACTIONS (7)
  - Breast fibroma [Recovered/Resolved]
  - Mental disorder [Unknown]
  - Alopecia [Recovering/Resolving]
  - Condition aggravated [Recovering/Resolving]
  - Contraindicated product prescribed [Unknown]
  - Product dose omission in error [Unknown]
  - Contraindicated product administered [Unknown]
